FAERS Safety Report 21494024 (Version 1)
Quarter: 2022Q4

REPORT INFORMATION
  Report Type: Spontaneous
  Country: NL (occurrence: NL)
  Receive Date: 20221021
  Receipt Date: 20221021
  Transmission Date: 20230113
  Serious: Yes (Other)
  Sender: FDA-Public Use
  Company Number: None

PATIENT
  Sex: Male
  Weight: 69 kg

DRUGS (5)
  1. PREDNISOLONE [Suspect]
     Active Substance: PREDNISOLONE
     Indication: Acute febrile neutrophilic dermatosis
     Dosage: 1 40 MG TAPERING, THERAPY END DATE: ASKU, BRAND NAME NOT SPECIFIED
     Dates: start: 20130101
  2. PREDNISOLONE [Suspect]
     Active Substance: PREDNISOLONE
     Indication: Asthma
  3. FOSTER [Suspect]
     Active Substance: BECLOMETHASONE\FORMOTEROL
     Indication: Asthma
     Dosage: UP TO 2 WEEKS 2 X 2 PUFFS, FREQUENCY TIME : 12 HOURS, UNIT DOSE: 2 DF, BECLOMETASON/FORMOTEROL AEROS
     Dates: start: 20130101
  4. PENTASA [Concomitant]
     Active Substance: MESALAMINE
     Indication: Product used for unknown indication
     Dosage: GRANULATE, MESALAZINE GRANULATE MGA 2G / PENTASA COMPACT GRANULATE MVA 2G IN SACHET, THERAPY START A
  5. ELOCON [Concomitant]
     Active Substance: MOMETASONE FUROATE
     Indication: Product used for unknown indication
     Dosage: SOLUTION, 1 MG/G (MILLIGRAM PER GRAM), MOMETASON OPL CUTANE 1MG/G, THERAPY START AND END DATE: ASKU

REACTIONS (3)
  - Cataract [Not Recovered/Not Resolved]
  - Retinal injury [Not Recovered/Not Resolved]
  - Vision blurred [Not Recovered/Not Resolved]
